FAERS Safety Report 12243356 (Version 1)
Quarter: 2016Q2

REPORT INFORMATION
  Report Type: Spontaneous
  Country: JP (occurrence: JP)
  Receive Date: 20160406
  Receipt Date: 20160406
  Transmission Date: 20160815
  Serious: Yes (Death, Hospitalization)
  Sender: FDA-Public Use
  Company Number: JP-SA-2016SA067763

PATIENT
  Age: 72 Year
  Sex: Female

DRUGS (5)
  1. LASIX [Suspect]
     Active Substance: FUROSEMIDE
     Route: 065
     Dates: end: 20160211
  2. SULBACTAM SODIUM/CEFOPERAZONE SODIUM [Suspect]
     Active Substance: CEFOPERAZONE\SULBACTAM SODIUM
     Dosage: FORM : POWDER FOR SOLUTION FOR INJECTION
     Route: 041
     Dates: start: 20160128, end: 20160128
  3. CARBOHYDRATES NOS/SODIUM LACTATE/SODIUM CHLORIDE/POTASSIUM CHLORIDE [Suspect]
     Active Substance: CARBOHYDRATES\POTASSIUM CHLORIDE\SODIUM CHLORIDE\SODIUM LACTATE
     Route: 065
     Dates: start: 20160128, end: 20160128
  4. NOVORAPID [Suspect]
     Active Substance: INSULIN ASPART
     Route: 065
     Dates: end: 20160211
  5. LACTEC G [Suspect]
     Active Substance: CALCIUM CHLORIDE\POTASSIUM CHLORIDE\SODIUM CHLORIDE\SODIUM LACTATE\SORBITOL
     Route: 065
     Dates: start: 20160128, end: 20160128

REACTIONS (1)
  - Toxic epidermal necrolysis [Fatal]

NARRATIVE: CASE EVENT DATE: 20160201
